FAERS Safety Report 16570701 (Version 3)
Quarter: 2020Q1

REPORT INFORMATION
  Report Type: Spontaneous
  Country: GB (occurrence: GB)
  Receive Date: 20190715
  Receipt Date: 20200201
  Transmission Date: 20200409
  Serious: Yes (Other)
  Sender: FDA-Public Use
  Company Number: GB-ACCORD-138718

PATIENT
  Age: 67 Year
  Sex: Male
  Weight: 59 kg

DRUGS (7)
  1. RAMIPRIL. [Suspect]
     Active Substance: RAMIPRIL
     Indication: HYPERTENSION
     Dosage: STRENGTH: 5 MG
     Route: 048
  2. RAMIPRIL. [Suspect]
     Active Substance: RAMIPRIL
     Indication: HYPERTENSION
     Dosage: STRENGTH: 2.5 MG
     Route: 048
  3. AMLODIPINE [Concomitant]
     Active Substance: AMLODIPINE BESYLATE
     Indication: PRODUCT USED FOR UNKNOWN INDICATION
     Dosage: 10MG
  4. TOPIRAMATE. [Concomitant]
     Active Substance: TOPIRAMATE
     Indication: PRODUCT USED FOR UNKNOWN INDICATION
     Dosage: 25MG, MORNING AND NIGHT
  5. RAMIPRIL. [Suspect]
     Active Substance: RAMIPRIL
     Dosage: STRENGTH: 1.25 MG
     Route: 048
     Dates: start: 20181018
  6. SIMVASTATIN. [Concomitant]
     Active Substance: SIMVASTATIN
     Indication: PRODUCT USED FOR UNKNOWN INDICATION
     Dosage: 20MG FILM-COATED TABLETS
  7. ASPIRIN. [Concomitant]
     Active Substance: ASPIRIN
     Indication: PRODUCT USED FOR UNKNOWN INDICATION
     Dosage: 75MG

REACTIONS (1)
  - Aortic aneurysm [Not Recovered/Not Resolved]

NARRATIVE: CASE EVENT DATE: 201901
